FAERS Safety Report 5328098-7 (Version None)
Quarter: 2007Q2

REPORT INFORMATION
  Report Type: 
  Country: None (occurrence: None)
  Receive Date: 20070514
  Receipt Date: 20070502
  Transmission Date: 20071010
  Serious: Yes (Hospitalization)
  Sender: FDA-Public Use
  Company Number: E3810-00880-SPO-US

PATIENT
  Age: 85 Year
  Sex: Female

DRUGS (2)
  1. ACIPHEX [Suspect]
     Indication: GASTROOESOPHAGEAL REFLUX DISEASE
     Dosage: 20 MG, ORAL; 3 TO 4 YEARS AGO
     Route: 048
  2. ZOLOFT [Concomitant]

REACTIONS (7)
  - ABNORMAL BEHAVIOUR [None]
  - ANOREXIA [None]
  - DEMENTIA [None]
  - DEPRESSION [None]
  - FALL [None]
  - INSOMNIA [None]
  - SEBORRHOEA [None]
